FAERS Safety Report 24344477 (Version 1)
Quarter: 2024Q3

REPORT INFORMATION
  Report Type: Spontaneous
  Country: CN (occurrence: CN)
  Receive Date: 20240920
  Receipt Date: 20240920
  Transmission Date: 20241016
  Serious: Yes (Hospitalization)
  Sender: PAREXEL
  Company Number: US COHERUS BIOSCIENCES, INC- 2024-COH-CN000940

PATIENT

DRUGS (3)
  1. ADALIMUMAB [Suspect]
     Active Substance: ADALIMUMAB
     Indication: Juvenile idiopathic arthritis
     Dosage: 40 MG, Q2WEEKS
     Route: 058
     Dates: start: 202403, end: 2024
  2. NAPROXEN [Concomitant]
     Active Substance: NAPROXEN
     Indication: Juvenile idiopathic arthritis
     Dosage: 200 MG, Q2WEEKS
     Dates: start: 2024
  3. SULFASALAZINE [Concomitant]
     Active Substance: SULFASALAZINE
     Indication: Juvenile idiopathic arthritis
     Dosage: 1 GRAM
     Dates: start: 2024

REACTIONS (5)
  - Mania [Recovered/Resolved]
  - Drug-induced liver injury [Unknown]
  - Emotional disorder [Recovered/Resolved]
  - Condition aggravated [Recovered/Resolved]
  - Drug ineffective [Unknown]

NARRATIVE: CASE EVENT DATE: 20240101
